FAERS Safety Report 7251505-X (Version None)
Quarter: 2011Q1

REPORT INFORMATION
  Report Type: 
  Country: None (occurrence: None)
  Receive Date: 20110128
  Receipt Date: 20110118
  Transmission Date: 20110831
  Serious: Yes (Hospitalization)
  Sender: FDA-Public Use
  Company Number: NL-GENENTECH-308588

PATIENT
  Sex: Female
  Weight: 49 kg

DRUGS (13)
  1. CYCLOPHOSPHAMIDE [Suspect]
     Indication: DIFFUSE LARGE B-CELL LYMPHOMA
     Dosage: 1072.5 MG, UNK
     Route: 042
     Dates: start: 20101007
  2. VINCRISTINE [Suspect]
     Indication: DIFFUSE LARGE B-CELL LYMPHOMA
     Dosage: 2 MG, UNK
     Route: 042
     Dates: start: 20101007
  3. G-CSF [Suspect]
     Indication: DIFFUSE LARGE B-CELL LYMPHOMA
     Dosage: 6 MG, UNK
     Route: 058
     Dates: start: 20101008
  4. RITUXIMAB [Suspect]
     Dosage: 500 MG, UNK
     Route: 042
     Dates: start: 20101104
  5. PREDNISONE [Suspect]
     Dosage: 100 MG, UNK
     Route: 048
     Dates: start: 20101104
  6. CYCLOPHOSPHAMIDE [Suspect]
     Dosage: 1012 MG, UNK
     Route: 042
     Dates: start: 20101104
  7. DOXORUBICIN [Suspect]
     Dosage: 67.5 MG, UNK
     Route: 042
     Dates: start: 20101104
  8. G-CSF [Suspect]
     Dosage: 6 MG, UNK
     Route: 058
     Dates: start: 20101105
  9. RITUXIMAB [Suspect]
     Indication: DIFFUSE LARGE B-CELL LYMPHOMA
     Dosage: 500 MG, UNK
     Route: 042
     Dates: start: 20101007
  10. VINCRISTINE [Suspect]
     Dosage: 2 MG, UNK
     Route: 042
     Dates: start: 20101104
  11. DOXORUBICIN [Suspect]
     Indication: DIFFUSE LARGE B-CELL LYMPHOMA
     Dosage: 71.5 MG, UNK
     Route: 042
     Dates: start: 20101007
  12. PREDNISONE [Suspect]
     Indication: DIFFUSE LARGE B-CELL LYMPHOMA
     Dosage: 100 MG, UNK
     Route: 048
     Dates: start: 20101007
  13. ALLOPURINOL [Concomitant]
     Indication: PROPHYLAXIS
     Dosage: 300 MG, UNK
     Route: 048
     Dates: start: 20101007

REACTIONS (3)
  - DEHYDRATION [None]
  - DIARRHOEA [None]
  - ANAEMIA [None]
